FAERS Safety Report 6057619-4 (Version None)
Quarter: 2009Q1

REPORT INFORMATION
  Report Type: 
  Country: None (occurrence: None)
  Receive Date: 20090129
  Receipt Date: 20080814
  Transmission Date: 20090719
  Serious: No
  Sender: FDA-Public Use
  Company Number: US-BAUSCH-2008BL003571

PATIENT
  Sex: Female

DRUGS (6)
  1. DESMOPRESSIN ACETATE [Suspect]
     Indication: DRUG USE FOR UNKNOWN INDICATION
     Route: 045
     Dates: start: 20080730, end: 20080801
  2. HYDROCORTISONE [Concomitant]
     Route: 048
  3. ORTHO TRI-CYCLEN LO [Concomitant]
  4. SYNTHROID [Concomitant]
  5. LEVSIN [Concomitant]
  6. WELLBUTRIN XL [Concomitant]
     Route: 048

REACTIONS (1)
  - DRUG INEFFECTIVE [None]
